FAERS Safety Report 10207231 (Version 1)
Quarter: 2014Q2

REPORT INFORMATION
  Report Type: Spontaneous
  Country: US (occurrence: None)
  Receive Date: 20140528
  Receipt Date: 20140528
  Transmission Date: 20141212
  Serious: No
  Sender: FDA-Public Use
  Company Number: None

PATIENT
  Age: 53 Year
  Sex: Female
  Weight: 92.53 kg

DRUGS (17)
  1. TOPIRAMATE [Suspect]
     Indication: BIPOLAR DISORDER
     Dosage: 200MG 1 TAB AT BEDTIME BY MOUTH
     Route: 048
     Dates: start: 20140512
  2. SYNTHROID [Concomitant]
  3. SEROQUEL [Concomitant]
  4. PROTONIX [Concomitant]
  5. SIMVASTATIN [Concomitant]
  6. LITHIUM [Concomitant]
  7. LUENESTA [Concomitant]
  8. VITAMIN D [Concomitant]
  9. FOLIC ACID [Concomitant]
  10. AMITIZA [Concomitant]
  11. ALLOPURINOL [Concomitant]
  12. BYSTOLIC [Concomitant]
  13. CYTOMEL [Concomitant]
  14. TOPOMAX [Concomitant]
  15. ASPIRIN [Concomitant]
  16. MELATONIN [Concomitant]
  17. MAGNESIUM [Concomitant]

REACTIONS (4)
  - Insomnia [None]
  - Musculoskeletal stiffness [None]
  - Nausea [None]
  - Tinnitus [None]
